FAERS Safety Report 5216714-X (Version None)
Quarter: 2007Q1

REPORT INFORMATION
  Report Type: 
  Country: None (occurrence: None)
  Receive Date: 20061130
  Receipt Date: 20060727
  Transmission Date: 20070707
  Serious: Yes (Hospitalization)
  Sender: FDA-Public Use
  Company Number: US200605000751

PATIENT
  Sex: Female
  Weight: 113.4 kg

DRUGS (1)
  1. ZYPREXA [Suspect]
     Dosage: 20 MG, 2/D
     Dates: start: 20000101, end: 20060101

REACTIONS (8)
  - BLOOD CHOLESTEROL ABNORMAL [None]
  - DIABETES MELLITUS [None]
  - HYPERGLYCAEMIA [None]
  - HYPERTENSION [None]
  - OBESITY [None]
  - PRESCRIBED OVERDOSE [None]
  - SUICIDAL IDEATION [None]
  - VISION BLURRED [None]
